FAERS Safety Report 5324104-4 (Version None)
Quarter: 2007Q2

REPORT INFORMATION
  Report Type: 
  Country: None (occurrence: None)
  Receive Date: 20070514
  Receipt Date: 20060503
  Transmission Date: 20071010
  Serious: No
  Sender: FDA-Public Use
  Company Number: A0604228A

PATIENT
  Age: 56 Year
  Sex: Female

DRUGS (2)
  1. NABUMETONE [Suspect]
     Indication: OSTEOARTHRITIS
     Dosage: 1500MG PER DAY
     Route: 048
     Dates: start: 20020101, end: 20020101
  2. NO CONCURRENT MEDICATION [Concomitant]

REACTIONS (2)
  - ABASIA [None]
  - DRUG INEFFECTIVE [None]
